FAERS Safety Report 5333024-0 (Version None)
Quarter: 2007Q2

REPORT INFORMATION
  Report Type: 
  Country: None (occurrence: None)
  Receive Date: 20070306
  Receipt Date: 20060801
  Transmission Date: 20071010
  Serious: Yes (Other)
  Sender: FDA-Public Use
  Company Number: A03200604852

PATIENT
  Age: 76 Year
  Sex: Male
  Weight: 71 kg

DRUGS (7)
  1. PLAVIX [Suspect]
     Dosage: ORAL
     Route: 048
     Dates: end: 20060612
  2. INNOHEP - HERAPIN-FRACTION, SODIUM SALT [Suspect]
     Indication: METASTATIC RENAL CELL CARCINOMA
     Dosage: 175 U/KG SC DAILY X 14 DAYS, THEN 75 U/KG SC DAILY FROM 16-MAY-2006 THROUGHT 09-JUN-2006 - SUBCUTANE
     Route: 058
     Dates: start: 20060516, end: 20060609
  3. INSULIN [Concomitant]
  4. HYDROCHLOROTHIAZIDE [Concomitant]
  5. AMLODIPINE BESYLATE [Concomitant]
  6. METOPROLOL SUCCINATE [Concomitant]
  7. ATORVASTATIN CALCIUM [Concomitant]

REACTIONS (3)
  - CEREBRAL HAEMORRHAGE [None]
  - HEADACHE [None]
  - MENTAL STATUS CHANGES [None]
